FAERS Safety Report 14690444 (Version 1)
Quarter: 2018Q1

REPORT INFORMATION
  Report Type: Spontaneous
  Country: FR (occurrence: FR)
  Receive Date: 20180328
  Receipt Date: 20180328
  Transmission Date: 20180509
  Serious: Yes (Hospitalization)
  Sender: FDA-Public Use
  Company Number: FR-SA-2018SA087981

PATIENT
  Age: 68 Year
  Sex: Female
  Weight: 48 kg

DRUGS (1)
  1. LOVENOX [Suspect]
     Active Substance: ENOXAPARIN SODIUM
     Indication: ATRIAL FIBRILLATION
     Route: 058
     Dates: start: 20180214, end: 20180221

REACTIONS (5)
  - Therapeutic embolisation [Unknown]
  - Peritoneal haemorrhage [Recovered/Resolved with Sequelae]
  - Haemorrhagic anaemia [Recovering/Resolving]
  - Arterial stent insertion [Unknown]
  - Haematoma [Recovering/Resolving]

NARRATIVE: CASE EVENT DATE: 20180221
